FAERS Safety Report 19969979 (Version 1)
Quarter: 2021Q4

REPORT INFORMATION
  Report Type: Spontaneous
  Country: CN (occurrence: CN)
  Receive Date: 20211019
  Receipt Date: 20211019
  Transmission Date: 20220303
  Serious: Yes (Other)
  Sender: FDA-Public Use
  Company Number: CN-ORGANON-O2110CHN001459

PATIENT
  Age: 12 Month
  Sex: Male
  Weight: 8.2 kg

DRUGS (1)
  1. SINGULAIR [Suspect]
     Active Substance: MONTELUKAST SODIUM
     Indication: Cough
     Dosage: 4 MILLIGRAM, QD
     Route: 048
     Dates: start: 20210830, end: 20210830

REACTIONS (3)
  - Diarrhoea [Recovering/Resolving]
  - Dehydration [Recovering/Resolving]
  - Product use in unapproved indication [Unknown]

NARRATIVE: CASE EVENT DATE: 20210830
